FAERS Safety Report 7219562-4 (Version None)
Quarter: 2011Q1

REPORT INFORMATION
  Report Type: 
  Country: None (occurrence: None)
  Receive Date: 20110103
  Receipt Date: 20101223
  Transmission Date: 20110831
  Serious: Yes (Life-Threatening, Hospitalization, Disabling)
  Sender: FDA-Public Use
  Company Number: 2009SP043060

PATIENT
  Age: 20 Year
  Sex: Female
  Weight: 63.9572 kg

DRUGS (8)
  1. NUVARING [Suspect]
     Indication: CONTRACEPTION
     Dosage: SEE CONT PAGE
     Dates: start: 20051001, end: 20060201
  2. NUVARING [Suspect]
     Indication: ACNE
     Dosage: SEE CONT PAGE
     Dates: start: 20051001, end: 20060201
  3. NUVARING [Suspect]
     Indication: CONTRACEPTION
     Dosage: SEE CONT PAGE
     Dates: start: 20060401, end: 20060701
  4. NUVARING [Suspect]
     Indication: ACNE
     Dosage: SEE CONT PAGE
     Dates: start: 20060401, end: 20060701
  5. PHENTERMINE [Concomitant]
  6. PROZAC [Suspect]
     Indication: DEPRESSION
     Dates: end: 20060101
  7. LEXAPRO [Concomitant]
  8. TERAMIN [Concomitant]

REACTIONS (26)
  - DYSPNOEA [None]
  - HYPERHIDROSIS [None]
  - HAEMATURIA [None]
  - PARAESTHESIA [None]
  - POSTOPERATIVE WOUND INFECTION [None]
  - DEEP VEIN THROMBOSIS [None]
  - BLOOD DISORDER [None]
  - ASTHENIA [None]
  - NAUSEA [None]
  - MAY-THURNER SYNDROME [None]
  - JOB DISSATISFACTION [None]
  - LEUKOCYTOSIS [None]
  - URINARY TRACT INFECTION [None]
  - ANXIETY [None]
  - FATIGUE [None]
  - STRESS [None]
  - DEPRESSION [None]
  - HEADACHE [None]
  - OROPHARYNGEAL PAIN [None]
  - VASCULAR COMPRESSION [None]
  - BALANCE DISORDER [None]
  - VOMITING [None]
  - SUICIDAL IDEATION [None]
  - ANGER [None]
  - ADNEXA UTERI CYST [None]
  - HYPERVENTILATION [None]
